FAERS Safety Report 8407703-2 (Version None)
Quarter: 2012Q2

REPORT INFORMATION
  Report Type: 
  Country: None (occurrence: None)
  Receive Date: 20120604
  Receipt Date: 20120529
  Transmission Date: 20120825
  Serious: No
  Sender: FDA-Public Use
  Company Number: US-BAYER-2012-054421

PATIENT
  Age: 75 Year
  Sex: Female
  Weight: 63 kg

DRUGS (3)
  1. LETRIPTOLINE [Concomitant]
  2. NAPROXEN (ALEVE) [Suspect]
     Dosage: 2 DF, BID
     Route: 048
     Dates: start: 20120521
  3. AMAZOPRAM [Concomitant]

REACTIONS (1)
  - DIZZINESS [None]
